FAERS Safety Report 9459900 (Version 1)
Quarter: 2013Q3

REPORT INFORMATION
  Report Type: Spontaneous
  Country: US (occurrence: US)
  Receive Date: 20130815
  Receipt Date: 20130815
  Transmission Date: 20140515
  Serious: No
  Sender: FDA-Public Use
  Company Number: US-BAYER-2013-097539

PATIENT
  Sex: Female

DRUGS (2)
  1. BEYAZ [Suspect]
     Indication: CONTRACEPTION
     Dosage: 3MG/0.02MG/0.451MG AND 0.451
     Route: 048
  2. YAZ [Suspect]
     Route: 048

REACTIONS (2)
  - Weight decreased [None]
  - Weight increased [None]
